FAERS Safety Report 15179449 (Version 1)
Quarter: 2018Q3

REPORT INFORMATION
  Report Type: Other
  Country: CA (occurrence: CA)
  Receive Date: 20180723
  Receipt Date: 20180723
  Transmission Date: 20181010
  Serious: Yes (Other)
  Sender: FDA-Public Use
  Company Number: CA-APOTEX-2018AP017244

PATIENT
  Sex: Female

DRUGS (5)
  1. SAPHRIS [Concomitant]
     Active Substance: ASENAPINE MALEATE
     Indication: PRODUCT USED FOR UNKNOWN INDICATION
     Route: 065
  2. QUETIAPINE. [Suspect]
     Active Substance: QUETIAPINE
     Dosage: 600 MG, UNK
     Route: 048
  3. QUETIAPINE. [Suspect]
     Active Substance: QUETIAPINE
     Indication: PRODUCT USED FOR UNKNOWN INDICATION
     Dosage: 25 MG, UNK
     Route: 048
  4. QUETIAPINE. [Suspect]
     Active Substance: QUETIAPINE
     Dosage: 450 MG, UNK
     Route: 048
  5. QUETIAPINE. [Suspect]
     Active Substance: QUETIAPINE
     Dosage: 100 MG, QD
     Route: 048

REACTIONS (14)
  - Bradyphrenia [Unknown]
  - Bruxism [Unknown]
  - Drug dependence [Unknown]
  - Withdrawal syndrome [Unknown]
  - Tooth loss [Unknown]
  - Mental disorder [Unknown]
  - Movement disorder [Unknown]
  - Aggression [Unknown]
  - Thyroid disorder [Unknown]
  - Amenorrhoea [Unknown]
  - Headache [Unknown]
  - Speech disorder [Unknown]
  - Neck pain [Unknown]
  - Thinking abnormal [Unknown]
